FAERS Safety Report 23794090 (Version 1)
Quarter: 2024Q2

REPORT INFORMATION
  Report Type: Spontaneous
  Country: US (occurrence: None)
  Receive Date: 20240426
  Receipt Date: 20240426
  Transmission Date: 20240716
  Serious: Yes (Hospitalization)
  Sender: FDA-Public Use
  Company Number: None

PATIENT
  Age: 70 Year
  Sex: Male
  Weight: 96.1 kg

DRUGS (1)
  1. ACETAMINOPHEN\HYDROCODONE [Suspect]
     Active Substance: ACETAMINOPHEN\HYDROCODONE
     Indication: Drug therapy
     Route: 048
     Dates: start: 20230324, end: 20230331

REACTIONS (3)
  - Face oedema [None]
  - Throat tightness [None]
  - Pharyngeal swelling [None]

NARRATIVE: CASE EVENT DATE: 20230331
